FAERS Safety Report 9095539 (Version 2)
Quarter: 2013Q1

REPORT INFORMATION
  Report Type: Spontaneous
  Country: GB (occurrence: GB)
  Receive Date: 20130219
  Receipt Date: 20130225
  Transmission Date: 20140127
  Serious: Yes (Other)
  Sender: FDA-Public Use
  Company Number: PHHY2013GB014389

PATIENT
  Sex: Female

DRUGS (2)
  1. WARFARIN [Suspect]
     Indication: ANTICOAGULANT THERAPY
  2. ENOXAPARIN SODIUM [Suspect]
     Indication: ANTICOAGULANT THERAPY

REACTIONS (3)
  - Premature delivery [Unknown]
  - Cerebral infarction [Unknown]
  - Maternal exposure during pregnancy [Unknown]
